FAERS Safety Report 8583538-5 (Version None)
Quarter: 2012Q3

REPORT INFORMATION
  Report Type: 
  Country: None (occurrence: None)
  Receive Date: 20120809
  Receipt Date: 20120806
  Transmission Date: 20120928
  Serious: Yes (Hospitalization)
  Sender: FDA-Public Use
  Company Number: DE-ABBOTT-12P-062-0964477-00

PATIENT
  Sex: Male

DRUGS (2)
  1. HUMIRA [Suspect]
     Indication: CROHN'S DISEASE
     Route: 058
     Dates: start: 20080204, end: 20120101
  2. HUMIRA [Suspect]
     Route: 058
     Dates: start: 20120101

REACTIONS (3)
  - ENTERITIS [None]
  - HOSPITALISATION [None]
  - INTESTINAL STENOSIS [None]
